FAERS Safety Report 7229046-5 (Version None)
Quarter: 2011Q1

REPORT INFORMATION
  Report Type: 
  Country: None (occurrence: None)
  Receive Date: 20110117
  Receipt Date: 20110113
  Transmission Date: 20110831
  Serious: Yes (Death, Hospitalization)
  Sender: FDA-Public Use
  Company Number: PHFR2010GB05752

PATIENT
  Sex: Male

DRUGS (8)
  1. THIAMINE [Concomitant]
     Indication: VITAMIN SUPPLEMENTATION
     Dosage: 300 MG, UNK
     Route: 048
     Dates: start: 20101201
  2. LANSOPRAZOLE [Concomitant]
     Indication: PROPHYLAXIS
     Dosage: 30 MG, UNK
     Route: 048
     Dates: start: 20101216
  3. PARACETAMOL [Concomitant]
     Indication: PAIN
     Dosage: 1 G, UNK
     Route: 048
     Dates: start: 20101201
  4. CLOZARIL [Suspect]
     Indication: DEMENTIA
     Dosage: 25 MG, UNK
     Route: 048
     Dates: start: 20060101, end: 20101218
  5. VITAMIN B COMPLEX [Concomitant]
     Indication: VITAMIN SUPPLEMENTATION
     Dosage: 1 DF, UNK
     Route: 048
     Dates: start: 20101201
  6. ROTIGOTINE [Concomitant]
     Indication: PARKINSON'S DISEASE
     Dosage: UNK DF, UNK
     Dates: start: 20100901
  7. CLOZARIL [Suspect]
     Indication: CONFUSIONAL STATE
     Dosage: UNK MG, UNK
     Route: 048
     Dates: start: 20041123
  8. MADOPAR DISPERSIBLE [Concomitant]
     Indication: PARKINSON'S DISEASE
     Dosage: 500 MG, UNK
     Route: 048
     Dates: start: 20020101

REACTIONS (12)
  - URINARY TRACT INFECTION [None]
  - HAEMOGLOBIN DECREASED [None]
  - GALLBLADDER PERFORATION [None]
  - WHITE BLOOD CELL COUNT INCREASED [None]
  - NEUTROPHIL COUNT INCREASED [None]
  - LIVER ABSCESS [None]
  - BLOOD ALKALINE PHOSPHATASE INCREASED [None]
  - DYSPHAGIA [None]
  - CHOLECYSTITIS [None]
  - PNEUMONIA [None]
  - BLOOD ALBUMIN DECREASED [None]
  - PARKINSON'S DISEASE [None]
